FAERS Safety Report 7053975-9 (Version None)
Quarter: 2010Q4

REPORT INFORMATION
  Report Type: 
  Country: None (occurrence: None)
  Receive Date: 20101020
  Receipt Date: 20101013
  Transmission Date: 20110411
  Serious: Yes (Other)
  Sender: FDA-Public Use
  Company Number: BR-BAXTER-2010BH025781

PATIENT

DRUGS (1)
  1. OSMITROL INJECTION [Suspect]
     Indication: PRODUCT USED FOR UNKNOWN INDICATION
     Route: 065

REACTIONS (3)
  - BACTERAEMIA [None]
  - CHILLS [None]
  - PYREXIA [None]
